FAERS Safety Report 19167610 (Version 1)
Quarter: 2021Q2

REPORT INFORMATION
  Report Type: Spontaneous
  Country: US (occurrence: US)
  Receive Date: 20210421
  Receipt Date: 20210421
  Transmission Date: 20210717
  Serious: Yes (Hospitalization)
  Sender: FDA-Public Use
  Company Number: None

PATIENT
  Age: 45 Year
  Sex: Female
  Weight: 63.6 kg

DRUGS (2)
  1. LIDOCAINE. [Suspect]
     Active Substance: LIDOCAINE
     Indication: BIOPSY ENDOMETRIUM
     Dosage: ?          OTHER FREQUENCY:ONCE;OTHER ROUTE:INTRAUTERINE?
     Route: 015
     Dates: start: 20210412, end: 20210412
  2. LIDOCAINE. [Suspect]
     Active Substance: LIDOCAINE
     Dosage: ?          OTHER FREQUENCY:ONCE;?
     Route: 019

REACTIONS (8)
  - Fatigue [None]
  - Altered state of consciousness [None]
  - Eye disorder [None]
  - Tremor [None]
  - Asthenia [None]
  - Communication disorder [None]
  - Speech disorder [None]
  - Hyporesponsive to stimuli [None]

NARRATIVE: CASE EVENT DATE: 20210412
